FAERS Safety Report 5682299-7 (Version None)
Quarter: 2008Q1

REPORT INFORMATION
  Report Type: 
  Country: None (occurrence: None)
  Receive Date: 20080327
  Receipt Date: 20080317
  Transmission Date: 20080703
  Serious: Yes (Other)
  Sender: FDA-Public Use
  Company Number: PHEH2008US01714

PATIENT
  Age: 64 Year
  Sex: Female

DRUGS (2)
  1. ACTONEL [Concomitant]
     Route: 065
  2. FEMARA [Suspect]
     Dosage: 2.5 UNK, UNK
     Route: 065
     Dates: end: 20080203

REACTIONS (7)
  - ANAESTHESIA [None]
  - BLADDER CATHETERISATION [None]
  - HERPES SIMPLEX [None]
  - MYALGIA [None]
  - URINARY RETENTION [None]
  - VAGINAL PAIN [None]
  - VULVOVAGINITIS [None]
